FAERS Safety Report 11335253 (Version 1)
Quarter: 2015Q3

REPORT INFORMATION
  Report Type: Spontaneous
  Country: US (occurrence: US)
  Receive Date: 20150804
  Receipt Date: 20150804
  Transmission Date: 20151125
  Serious: Yes (Hospitalization)
  Sender: FDA-Public Use
  Company Number: US-BEH-2015052600

PATIENT
  Age: 59 Year
  Sex: Female

DRUGS (1)
  1. HIZENTRA [Suspect]
     Active Substance: HUMAN IMMUNOGLOBULIN G
     Indication: PRODUCT USED FOR UNKNOWN INDICATION
     Dosage: TAKING HIZENTRA FOR THE PAST 4-5 YEARS

REACTIONS (9)
  - Impaired work ability [Unknown]
  - Craniocerebral injury [Unknown]
  - Disability [Unknown]
  - Road traffic accident [Unknown]
  - Pneumonia [Unknown]
  - Asthma [Not Recovered/Not Resolved]
  - Infection [Unknown]
  - Sinus operation [Unknown]
  - Ill-defined disorder [Unknown]
